FAERS Safety Report 18992337 (Version 1)
Quarter: 2021Q1

REPORT INFORMATION
  Report Type: Spontaneous
  Country: US (occurrence: US)
  Receive Date: 20210310
  Receipt Date: 20210310
  Transmission Date: 20210420
  Serious: Yes (Hospitalization)
  Sender: FDA-Public Use
  Company Number: None

PATIENT
  Age: 35 Year
  Weight: 36.4 kg

DRUGS (1)
  1. CISPLATIN. [Suspect]
     Active Substance: CISPLATIN
     Dates: end: 20201123

REACTIONS (5)
  - Vomiting [None]
  - Nausea [None]
  - Syncope [None]
  - Blood pressure decreased [None]
  - Infusion related reaction [None]

NARRATIVE: CASE EVENT DATE: 20201221
